FAERS Safety Report 4428151-6 (Version None)
Quarter: 2004Q3

REPORT INFORMATION
  Report Type: 
  Country: None (occurrence: None)
  Receive Date: 20040726
  Receipt Date: 20040513
  Transmission Date: 20050211
  Serious: No
  Sender: FDA-Public Use
  Company Number: USA030537650

PATIENT
  Age: 85 Year
  Sex: Female
  Weight: 50 kg

DRUGS (9)
  1. FORTEO [Suspect]
     Indication: OSTEOPOROSIS
     Dosage: 20 UG DAY
     Dates: start: 20030419
  2. ASPIRIN [Concomitant]
  3. CALTRATE (CALCIUM CARBONATE) [Concomitant]
  4. INDAPAMIDE [Concomitant]
  5. LIPITOR [Concomitant]
  6. LISINOPRIL [Concomitant]
  7. NOLVADEX [Concomitant]
  8. VITAMIN [Concomitant]
  9. SYNTHROID [Concomitant]

REACTIONS (3)
  - ARTHRITIS [None]
  - OVERDOSE [None]
  - PARAESTHESIA [None]
